FAERS Safety Report 5421867-4 (Version None)
Quarter: 2007Q3

REPORT INFORMATION
  Report Type: 
  Country: None (occurrence: None)
  Receive Date: 20070817
  Receipt Date: 20070801
  Transmission Date: 20080115
  Serious: Yes (Life-Threatening, Hospitalization)
  Sender: FDA-Public Use
  Company Number: DSA_30346_2007

PATIENT
  Sex: Female

DRUGS (1)
  1. LORAZEPAM [Suspect]
     Dosage: (20 MG 1X ORAL)
     Route: 048
     Dates: start: 20070731, end: 20070731

REACTIONS (4)
  - CONVULSION [None]
  - FATIGUE [None]
  - OVERDOSE [None]
  - TACHYCARDIA [None]
